FAERS Safety Report 25336919 (Version 2)
Quarter: 2025Q2

REPORT INFORMATION
  Report Type: Spontaneous
  Country: FR (occurrence: FR)
  Receive Date: 20250520
  Receipt Date: 20250523
  Transmission Date: 20250716
  Serious: Yes (Hospitalization)
  Sender: SANDOZ
  Company Number: None

PATIENT
  Age: 49 Year
  Sex: Female
  Weight: 67 kg

DRUGS (5)
  1. CYCLOPHOSPHAMIDE [Suspect]
     Active Substance: CYCLOPHOSPHAMIDE
     Indication: Primary mediastinal large B-cell lymphoma
     Dosage: 750 MG/M2, Q3W; 8 CYCLES
     Route: 042
     Dates: start: 2011
  2. DOXORUBICIN HYDROCHLORIDE [Suspect]
     Active Substance: DOXORUBICIN HYDROCHLORIDE
     Indication: Primary mediastinal large B-cell lymphoma
     Dosage: 50 MG/M2, Q3W, 8 CYCLES
     Route: 042
     Dates: start: 2011
  3. PREDNISONE [Suspect]
     Active Substance: PREDNISONE
     Indication: Primary mediastinal large B-cell lymphoma
     Dosage: 40 MG/M2, Q3W
     Route: 048
     Dates: start: 2011
  4. RITUXIMAB [Suspect]
     Active Substance: RITUXIMAB
     Indication: Primary mediastinal large B-cell lymphoma
     Dosage: 375 MG/M2; Q3W; 8 CYCLES; (RITUXIMAB ((MAMMIFERE/HAMSTER /CELLULES CHO)))
     Route: 042
     Dates: start: 2011
  5. VINCRISTINE SULFATE [Suspect]
     Active Substance: VINCRISTINE SULFATE
     Indication: Primary mediastinal large B-cell lymphoma
     Dosage: 1.4 MG/M2; Q3W, 8 CYCLES
     Route: 042
     Dates: start: 2011

REACTIONS (2)
  - Ventricular dysfunction [Not Recovered/Not Resolved]
  - Ventricular tachycardia [Recovered/Resolved]

NARRATIVE: CASE EVENT DATE: 20241231
